FAERS Safety Report 18578361 (Version 1)
Quarter: 2020Q4

REPORT INFORMATION
  Report Type: Spontaneous
  Country: US (occurrence: US)
  Receive Date: 20201204
  Receipt Date: 20201204
  Transmission Date: 20210114
  Serious: Yes (Hospitalization, Other)
  Sender: FDA-Public Use
  Company Number: US-IPCA LABORATORIES LIMITED-IPC-2020-US-003542

PATIENT

DRUGS (5)
  1. METOPROLOL. [Suspect]
     Active Substance: METOPROLOL
     Indication: TACHYCARDIA
     Dosage: 50 MILLIGRAM, QD
     Route: 064
  2. FLECAINIDE [Suspect]
     Active Substance: FLECAINIDE
     Indication: TACHYCARDIA
     Dosage: 150 MILLIGRAM, BID
     Route: 064
  3. AMIODARONE [Suspect]
     Active Substance: AMIODARONE
     Dosage: 600 MILLIGRAM, TID
     Route: 064
  4. AMIODARONE [Suspect]
     Active Substance: AMIODARONE
     Indication: TACHYCARDIA
     Dosage: 5 MILLIGRAM
     Route: 064
  5. AMIODARONE [Suspect]
     Active Substance: AMIODARONE
     Dosage: 800 MILLIGRAM, QD
     Route: 064

REACTIONS (6)
  - Foetal cardiac disorder [Recovered/Resolved]
  - Supraventricular tachycardia [Recovered/Resolved]
  - Hydrops foetalis [Recovered/Resolved]
  - Foetal exposure during pregnancy [Unknown]
  - Condition aggravated [Recovered/Resolved]
  - Premature baby [Unknown]
